FAERS Safety Report 5492697-2 (Version None)
Quarter: 2007Q4

REPORT INFORMATION
  Report Type: 
  Country: None (occurrence: None)
  Receive Date: 20071016
  Receipt Date: 20071003
  Transmission Date: 20080405
  Serious: Yes (Other)
  Sender: FDA-Public Use
  Company Number: 2007332587

PATIENT
  Age: 20 Year
  Sex: Male

DRUGS (1)
  1. DEXTROMETHOPRHAN, GUAIFENESIN (DEXTROMETHORPHAN, GUAIFENESIN) [Suspect]
     Dosage: APPROX. 1 GRAM OF LIQUID ^CRYSTAL DEX.^, ORAL
     Route: 048

REACTIONS (13)
  - AGITATION [None]
  - DRUG ABUSER [None]
  - DRY SKIN [None]
  - FLUSHING [None]
  - GASTROINTESTINAL SOUNDS ABNORMAL [None]
  - HYPERTENSION [None]
  - HYPOTENSION [None]
  - HYPOVENTILATION [None]
  - MYDRIASIS [None]
  - MYOCLONUS [None]
  - TACHYCARDIA [None]
  - TREMOR [None]
  - UNRESPONSIVE TO STIMULI [None]
